FAERS Safety Report 20847136 (Version 1)
Quarter: 2022Q2

REPORT INFORMATION
  Report Type: Report from Study
  Country: CA (occurrence: CA)
  Receive Date: 20220519
  Receipt Date: 20220519
  Transmission Date: 20220721
  Serious: Yes (Hospitalization, Other)
  Sender: FDA-Public Use
  Company Number: CA-ABBVIE-22K-028-4397606-00

PATIENT
  Sex: Male

DRUGS (1)
  1. SKYRIZI [Suspect]
     Active Substance: RISANKIZUMAB-RZAA
     Indication: Psoriasis
     Route: 058
     Dates: start: 20190813

REACTIONS (14)
  - Accident at work [Unknown]
  - Loss of consciousness [Recovered/Resolved]
  - Loss of consciousness [Unknown]
  - Hospitalisation [Unknown]
  - Pain in extremity [Unknown]
  - Chest pain [Unknown]
  - Blood pressure ambulatory abnormal [Unknown]
  - Cardiac valve disease [Unknown]
  - Hypoaesthesia [Unknown]
  - Stress [Unknown]
  - Suture insertion [Unknown]
  - Therapeutic response shortened [Unknown]
  - Psoriasis [Unknown]
  - Headache [Unknown]

NARRATIVE: CASE EVENT DATE: 20200101
